FAERS Safety Report 7830205-9 (Version None)
Quarter: 2011Q4

REPORT INFORMATION
  Report Type: 
  Country: None (occurrence: None)
  Receive Date: 20111021
  Receipt Date: 20111013
  Transmission Date: 20120403
  Serious: Yes (Other)
  Sender: FDA-Public Use
  Company Number: PHEH2011US05638

PATIENT
  Sex: Female

DRUGS (6)
  1. LOTREL [Concomitant]
     Dosage: 5/20 MG PER DAY
  2. ASPIRIN [Concomitant]
     Dosage: 81 MG,
  3. CATAPRES [Concomitant]
     Dosage: 0.1 MG,
  4. TYLENOL W/ CODEINE [Concomitant]
  5. DIOVAN HCT [Suspect]
     Indication: BLOOD PRESSURE
     Dosage: 320 MG VALS/ 25 MG HCT, PER DAY
     Route: 048
  6. DIOVAN HCT [Suspect]

REACTIONS (1)
  - THROMBOSIS [None]
